FAERS Safety Report 18541960 (Version 1)
Quarter: 2020Q4

REPORT INFORMATION
  Report Type: Spontaneous
  Country: US (occurrence: US)
  Receive Date: 20201125
  Receipt Date: 20201125
  Transmission Date: 20210114
  Serious: No
  Sender: FDA-Public Use
  Company Number: US-ACCORD-206357

PATIENT
  Sex: Male
  Weight: 90.72 kg

DRUGS (1)
  1. BUPROPION/BUPROPION HYDROCHLORIDE [Suspect]
     Active Substance: BUPROPION HYDROCHLORIDE
     Indication: ANXIETY
     Dosage: STRENGTH: 150 MG
     Route: 048
     Dates: start: 20201016

REACTIONS (1)
  - Insomnia [Not Recovered/Not Resolved]
